FAERS Safety Report 5280348-1 (Version None)
Quarter: 2007Q1

REPORT INFORMATION
  Report Type: 
  Country: None (occurrence: None)
  Receive Date: 20070329
  Receipt Date: 20070322
  Transmission Date: 20070707
  Serious: Yes (Hospitalization)
  Sender: FDA-Public Use
  Company Number: CA-ELI_LILLY_AND_COMPANY-CA200703005300

PATIENT
  Age: 11 Year
  Sex: Female
  Weight: 59.1 kg

DRUGS (5)
  1. SOMATROPIN [Suspect]
     Indication: GROWTH HORMONE DEFICIENCY
     Dosage: 1.8 MG, 6/W
     Route: 058
     Dates: start: 20060707, end: 20070303
  2. DEPO PROVERA /00115202/ [Concomitant]
     Dates: start: 20060821
  3. TOPAMAX [Concomitant]
     Indication: CONVULSION
     Dates: start: 20010101
  4. LAMICTAL [Concomitant]
     Indication: CONVULSION
     Dates: start: 20010101
  5. ATIVAN [Concomitant]
     Indication: CONVULSION
     Dates: start: 20010101

REACTIONS (1)
  - OPTIC TRACT GLIOMA [None]
